FAERS Safety Report 20350397 (Version 1)
Quarter: 2022Q1

REPORT INFORMATION
  Report Type: Spontaneous
  Country: US (occurrence: US)
  Receive Date: 20220119
  Receipt Date: 20220119
  Transmission Date: 20220423
  Serious: No
  Sender: FDA-Public Use
  Company Number: US-PFIZER INC-202101828755

PATIENT
  Age: 35 Year
  Sex: Female

DRUGS (1)
  1. XANAX XR [Suspect]
     Active Substance: ALPRAZOLAM
     Dosage: 1 TABLET BY MOUTH ONCE DAILY
     Route: 048

REACTIONS (1)
  - Pain [Unknown]
